FAERS Safety Report 7641078-1 (Version None)
Quarter: 2011Q3

REPORT INFORMATION
  Report Type: 
  Country: None (occurrence: None)
  Receive Date: 20110728
  Receipt Date: 20110727
  Transmission Date: 20111222
  Serious: Yes (Hospitalization)
  Sender: FDA-Public Use
  Company Number: BR-BRISTOL-MYERS SQUIBB COMPANY-15320385

PATIENT
  Age: 46 Year
  Sex: Female
  Weight: 68 kg

DRUGS (27)
  1. SCOPOLAMINE [Concomitant]
     Indication: ANXIETY
     Dates: start: 20101001, end: 20101001
  2. DIPIRONE [Concomitant]
     Indication: ANXIETY
     Dates: start: 20101001, end: 20101001
  3. DIAZEPAM [Concomitant]
     Indication: ANXIETY
     Dates: start: 20101001, end: 20101001
  4. KETOPROFEN [Concomitant]
     Indication: BACK PAIN
     Dosage: 1OCT10-01OCT10,07OCT10-13OCT2010.
     Dates: start: 20101001, end: 20101013
  5. SCOPOLAMINE [Concomitant]
     Indication: BACK PAIN
     Dates: start: 20101001, end: 20101001
  6. DIAZEPAM [Concomitant]
     Indication: BACK PAIN
     Dates: start: 20101001, end: 20101001
  7. HYOSCINE [Concomitant]
     Indication: ANXIETY
     Dosage: 02OCT10-04OCT10,5OCT10-13OCT10
     Dates: start: 20101002, end: 20101013
  8. DIPIRONE [Concomitant]
     Indication: BACK PAIN
     Dates: start: 20101001, end: 20101001
  9. ORPHENADRINE CITRATE [Concomitant]
     Indication: BACK PAIN
     Dosage: 2-4OCT10,5OCT10-13OCT2010
     Dates: start: 20101002, end: 20101013
  10. CAFFEINE + DIPYRONE [Concomitant]
     Indication: BACK PAIN
     Dosage: 2OCT10-04OCT10,05OCT10-13OCT10
     Dates: start: 20101002, end: 20101013
  11. CODEINE PHOSPHATE AND ACETAMINOPHEN [Concomitant]
     Indication: BACK PAIN
     Dosage: 2-4OCT10,05OCT10-13OCT10.
     Dates: start: 20101002, end: 20101013
  12. COMBIVIR [Suspect]
     Indication: HIV INFECTION
     Dosage: 1 DF=150/300MG,LAST DOSE:02OCT2010
     Route: 048
     Dates: start: 20091019
  13. METOCLOPRAMIDE HCL [Concomitant]
     Indication: BACK PAIN
     Dates: start: 20101001, end: 20101001
  14. METOCLOPRAMIDE HCL [Concomitant]
     Indication: ANXIETY
     Dates: start: 20101001, end: 20101001
  15. PHENERGAN [Concomitant]
     Indication: BACK PAIN
     Dates: start: 20101001, end: 20101001
  16. KETOPROFEN [Concomitant]
     Indication: NEPHROLITHIASIS
     Dosage: 1OCT10-01OCT10,07OCT10-13OCT2010.
     Dates: start: 20101001, end: 20101013
  17. ATAZANAVIR [Suspect]
     Indication: HIV INFECTION
     Dosage: LAST DOSE:01OCT2010
     Route: 048
     Dates: start: 20100218
  18. PHENERGAN [Concomitant]
     Indication: ANXIETY
     Dates: start: 20101001, end: 20101001
  19. KETOPROFEN [Concomitant]
     Indication: ANXIETY
     Dosage: 1OCT10-01OCT10,07OCT10-13OCT2010.
     Dates: start: 20101001, end: 20101013
  20. ORPHENADRINE CITRATE [Concomitant]
     Indication: ANXIETY
     Dosage: 2-4OCT10,5OCT10-13OCT2010
     Dates: start: 20101002, end: 20101013
  21. RAMIPRIL [Concomitant]
     Indication: PROTEINURIA
     Dates: start: 20100920, end: 20101119
  22. MORFIN [Concomitant]
     Indication: BACK PAIN
     Dates: start: 20101001, end: 20101001
  23. MORFIN [Concomitant]
     Indication: ANXIETY
     Dates: start: 20101001, end: 20101001
  24. CODEINE PHOSPHATE AND ACETAMINOPHEN [Concomitant]
     Indication: ANXIETY
     Dosage: 2-4OCT10,05OCT10-13OCT10.
     Dates: start: 20101002, end: 20101013
  25. CIPROFLOXACIN [Concomitant]
     Indication: INFECTION
     Dates: start: 20101002, end: 20101004
  26. CAFFEINE + DIPYRONE [Concomitant]
     Indication: ANXIETY
     Dosage: 2OCT10-04OCT10,05OCT10-13OCT10
     Dates: start: 20101002, end: 20101013
  27. HYOSCINE [Concomitant]
     Indication: BACK PAIN
     Dosage: 02OCT10-04OCT10,5OCT10-13OCT10
     Dates: start: 20101002, end: 20101013

REACTIONS (1)
  - RENAL COLIC [None]
